FAERS Safety Report 17544274 (Version 1)
Quarter: 2020Q1

REPORT INFORMATION
  Report Type: Spontaneous
  Country: US (occurrence: US)
  Receive Date: 20200316
  Receipt Date: 20200316
  Transmission Date: 20200409
  Serious: Yes (Other)
  Sender: FDA-Public Use
  Company Number: US-JNJFOC-20200310050

PATIENT
  Sex: Male

DRUGS (1)
  1. INVEGA [Suspect]
     Active Substance: PALIPERIDONE
     Indication: SCHIZOPHRENIA
     Dosage: PO- ORAL
     Route: 048
     Dates: end: 2017

REACTIONS (4)
  - Weight increased [Unknown]
  - Body temperature increased [Not Recovered/Not Resolved]
  - Hallucination, auditory [Unknown]
  - Anhidrosis [Not Recovered/Not Resolved]
